FAERS Safety Report 4393517-X (Version None)
Quarter: 2004Q3

REPORT INFORMATION
  Report Type: 
  Country: None (occurrence: None)
  Receive Date: 20040707
  Receipt Date: 20040707
  Transmission Date: 20050211
  Serious: Yes (Hospitalization, Other)
  Sender: FDA-Public Use
  Company Number: None

PATIENT
  Age: 77 Year
  Sex: Male
  Weight: 81.6475 kg

DRUGS (2)
  1. ZOLOFT [Suspect]
     Indication: DEPRESSION
     Dosage: 50 MG, 1 DAILY
     Dates: start: 20031016, end: 20031111
  2. ZOLOFT [Suspect]
     Dosage: 100 MG 1 DAILY , 150 MG 1 DAILY

REACTIONS (3)
  - DIFFICULTY IN WALKING [None]
  - MOVEMENT DISORDER [None]
  - PARKINSON'S DISEASE [None]
